FAERS Safety Report 8173969-X (Version None)
Quarter: 2012Q1

REPORT INFORMATION
  Report Type: 
  Country: None (occurrence: None)
  Receive Date: 20120229
  Receipt Date: 20120217
  Transmission Date: 20120608
  Serious: Yes (Hospitalization, Other)
  Sender: FDA-Public Use
  Company Number: JP-UCBSA-013245

PATIENT
  Age: 38 Year
  Sex: Female

DRUGS (11)
  1. SULFASALAZINE [Concomitant]
     Dates: start: 20050723
  2. PREDNISOLONE FARNESYLATE [Concomitant]
     Dates: start: 20100402
  3. WHITE PETROLATUM [Concomitant]
     Dosage: DAILY DOSE: ADEQUATE
     Dates: start: 20110304
  4. AMLODIPINE BESILATE [Concomitant]
     Dosage: DAILY DOSE: 5 MG
     Dates: start: 20120105
  5. PREDNISOLONE [Concomitant]
     Dosage: DAILY DOSE: 5 MG
     Dates: start: 20081003
  6. SULFASALAZINE [Concomitant]
     Dates: start: 20040603
  7. TEPRENONE [Concomitant]
  8. CERTOLIZUMAB PEGOL [Suspect]
     Indication: RHEUMATOID ARTHRITIS
     Route: 058
     Dates: start: 20091030
  9. PRAVASTATIN SODIUM [Concomitant]
  10. MECOBALAMIN [Concomitant]
  11. CALCITRIOL [Concomitant]

REACTIONS (2)
  - DEAFNESS NEUROSENSORY [None]
  - SYNOVITIS [None]
